FAERS Safety Report 14271361 (Version 1)
Quarter: 2017Q4

REPORT INFORMATION
  Report Type: Spontaneous
  Country: US (occurrence: US)
  Receive Date: 20171211
  Receipt Date: 20171211
  Transmission Date: 20180321
  Serious: No
  Sender: FDA-Public Use
  Company Number: US-PFIZER INC-2017527938

PATIENT
  Age: 31 Month
  Sex: Male
  Weight: 18 kg

DRUGS (2)
  1. AZITHROMYCIN ANHYDROUS. [Suspect]
     Active Substance: AZITHROMYCIN ANHYDROUS
     Dosage: 9.2 ML FOR FIRST DOSE, THEN 2.3ML ONCE DAILY FOR 4 DAYS
     Dates: start: 20171206, end: 20171206
  2. AZITHROMYCIN ANHYDROUS. [Suspect]
     Active Substance: AZITHROMYCIN ANHYDROUS
     Indication: EAR INFECTION
     Dosage: 9.2 ML FOR FIRST DOSE, THEN 2.3ML ONCE DAILY FOR 4 DAYS
     Dates: start: 20171206, end: 20171206

REACTIONS (1)
  - Vomiting [Unknown]

NARRATIVE: CASE EVENT DATE: 20171207
